FAERS Safety Report 16310730 (Version 1)
Quarter: 2019Q2

REPORT INFORMATION
  Report Type: Spontaneous
  Country: US (occurrence: US)
  Receive Date: 20190409
  Receipt Date: 20190409
  Transmission Date: 20190711
  Serious: No
  Sender: FDA-Public Use
  Company Number: None

PATIENT
  Sex: Female

DRUGS (1)
  1. TALTZ [Suspect]
     Active Substance: IXEKIZUMAB
     Indication: PSORIATIC ARTHROPATHY
     Route: 058
     Dates: start: 20190208

REACTIONS (6)
  - Abdominal distension [None]
  - Erythema [None]
  - Blood pressure increased [None]
  - Brucellosis [None]
  - Oedema [None]
  - Dyspnoea [None]
